FAERS Safety Report 5145517-X (Version None)
Quarter: 2006Q4

REPORT INFORMATION
  Report Type: 
  Country: None (occurrence: None)
  Receive Date: 20061101
  Receipt Date: 20061020
  Transmission Date: 20070319
  Serious: Yes (Hospitalization)
  Sender: FDA-Public Use
  Company Number: 2006BI015276

PATIENT
  Sex: Female

DRUGS (1)
  1. AVONEX [Suspect]
     Indication: DRUG USE FOR UNKNOWN INDICATION
     Dosage: IM
     Route: 030
     Dates: start: 19991101

REACTIONS (6)
  - CATHETER RELATED COMPLICATION [None]
  - FALL [None]
  - MUSCULAR WEAKNESS [None]
  - OPEN WOUND [None]
  - OPTIC NEURITIS [None]
  - ULCER [None]
